FAERS Safety Report 11241868 (Version 5)
Quarter: 2018Q4

REPORT INFORMATION
  Report Type: Spontaneous
  Country: US (occurrence: US)
  Receive Date: 20150706
  Receipt Date: 20181115
  Transmission Date: 20190204
  Serious: Yes (Hospitalization, Other)
  Sender: FDA-Public Use
  Company Number: US-DSJP-DSU-2015-120645

PATIENT

DRUGS (1)
  1. BENICAR [Suspect]
     Active Substance: OLMESARTAN MEDOXOMIL
     Indication: HYPERTENSION
     Dosage: 40 MG, QD
     Route: 048
     Dates: start: 2007

REACTIONS (16)
  - Ureteral polyp [Unknown]
  - Hepatic steatosis [Unknown]
  - Colitis [Unknown]
  - Stoma obstruction [Unknown]
  - Renal atrophy [Recovered/Resolved]
  - Hydronephrosis [Unknown]
  - Renal cyst [Unknown]
  - Rectal abscess [Unknown]
  - Cholecystitis [Recovered/Resolved]
  - Small intestinal obstruction [Recovered/Resolved]
  - Sprue-like enteropathy [Recovering/Resolving]
  - Acute kidney injury [Unknown]
  - Colitis ulcerative [Recovered/Resolved]
  - Pancreatitis [Recovered/Resolved]
  - Gastrooesophageal reflux disease [Recovered/Resolved]
  - Hernia [Unknown]

NARRATIVE: CASE EVENT DATE: 20080501
